FAERS Safety Report 7421895-3 (Version None)
Quarter: 2011Q2

REPORT INFORMATION
  Report Type: 
  Country: None (occurrence: None)
  Receive Date: 20110418
  Receipt Date: 20110406
  Transmission Date: 20111010
  Serious: Yes (Hospitalization, Congenital Anomaly)
  Sender: FDA-Public Use
  Company Number: DK-ELI_LILLY_AND_COMPANY-DK201104001501

PATIENT
  Sex: Female
  Weight: 1.59 kg

DRUGS (4)
  1. CYMBALTA [Suspect]
     Indication: AFFECT LABILITY
     Dosage: 60 MG, UNK
     Route: 064
  2. LAMOTRIGINE [Concomitant]
     Indication: AFFECT LABILITY
     Route: 064
  3. LAMOTRIGINE [Concomitant]
     Route: 064
  4. CYMBALTA [Suspect]
     Dosage: 60 MG, UNK
     Route: 064

REACTIONS (6)
  - IRRITABILITY [None]
  - DRUG EXPOSURE DURING PREGNANCY [None]
  - FOETAL GROWTH RESTRICTION [None]
  - PREMATURE BABY [None]
  - DRUG WITHDRAWAL SYNDROME NEONATAL [None]
  - MUSCLE TWITCHING [None]
